FAERS Safety Report 25495894 (Version 1)
Quarter: 2025Q2

REPORT INFORMATION
  Report Type: Spontaneous
  Country: US (occurrence: US)
  Receive Date: 20250630
  Receipt Date: 20250630
  Transmission Date: 20250716
  Serious: No
  Sender: SANOFI AVENTIS
  Company Number: US-SA-2025SA183359

PATIENT
  Sex: Female

DRUGS (11)
  1. KEVZARA [Suspect]
     Active Substance: SARILUMAB
     Indication: Polymyalgia rheumatica
     Dosage: 200 MG, QOW
     Route: 058
  2. CARVEDILOL [Concomitant]
     Active Substance: CARVEDILOL
  3. ELIQUIS [Concomitant]
     Active Substance: APIXABAN
  4. EZETIMIBE [Concomitant]
     Active Substance: EZETIMIBE
  5. FLUCONAZOLE [Concomitant]
     Active Substance: FLUCONAZOLE
  6. FUROSEMIDE [Concomitant]
     Active Substance: FUROSEMIDE
  7. MONTELUKAST [Concomitant]
     Active Substance: MONTELUKAST
  8. OZEMPIC [Concomitant]
     Active Substance: SEMAGLUTIDE
  9. PREDNISONE [Concomitant]
     Active Substance: PREDNISONE
  10. RABEPRAZOLE [Concomitant]
     Active Substance: RABEPRAZOLE
  11. SYMBICORT [Concomitant]
     Active Substance: BUDESONIDE\FORMOTEROL FUMARATE DIHYDRATE

REACTIONS (3)
  - Nasal congestion [Not Recovered/Not Resolved]
  - Rhinorrhoea [Not Recovered/Not Resolved]
  - Dental operation [Not Recovered/Not Resolved]
